FAERS Safety Report 4701739-0 (Version None)
Quarter: 2005Q2

REPORT INFORMATION
  Report Type: 
  Country: None (occurrence: None)
  Receive Date: 20050627
  Receipt Date: 20050617
  Transmission Date: 20051028
  Serious: Yes (Other)
  Sender: FDA-Public Use
  Company Number: 2005-05-0740

PATIENT
  Age: 69 Year
  Sex: Male
  Weight: 68 kg

DRUGS (11)
  1. PEG-INTRON [Suspect]
     Indication: HEPATITIS C
     Dosage: 100 MCG QW SUBCUTANEOUS
     Route: 058
     Dates: start: 20050122, end: 20050507
  2. REBETOL [Suspect]
     Indication: HEPATITIS C
     Dosage: SEE IMAGE
     Route: 048
     Dates: start: 20050122, end: 20050318
  3. REBETOL [Suspect]
     Indication: HEPATITIS C
     Dosage: SEE IMAGE
     Route: 048
     Dates: start: 20050122, end: 20050506
  4. REBETOL [Suspect]
     Indication: HEPATITIS C
     Dosage: SEE IMAGE
     Route: 048
     Dates: start: 20050319, end: 20050506
  5. DIOVAN [Concomitant]
  6. CYANOCOBALAMIN [Concomitant]
  7. ITRACONAZOLE [Concomitant]
  8. URSODEOXYCHOLIC ACID TABLET [Concomitant]
  9. ZOPICLONE [Concomitant]
  10. CLARITIN [Concomitant]
  11. FOLIAMIN TABLETS [Concomitant]

REACTIONS (5)
  - BRONCHIECTASIS [None]
  - CHRONIC OBSTRUCTIVE PULMONARY DISEASE [None]
  - DIFFUSE PANBRONCHIOLITIS [None]
  - INTERSTITIAL LUNG DISEASE [None]
  - RESPIRATORY DISORDER [None]
